FAERS Safety Report 9473905 (Version 2)
Quarter: 2013Q3

REPORT INFORMATION
  Report Type: Spontaneous
  Country: US (occurrence: US)
  Receive Date: 20130823
  Receipt Date: 20130823
  Transmission Date: 20140515
  Serious: Yes (Hospitalization, Other)
  Sender: FDA-Public Use
  Company Number: US-BRISTOL-MYERS SQUIBB COMPANY-17126046

PATIENT
  Sex: Male

DRUGS (1)
  1. SPRYCEL [Suspect]
     Indication: ACUTE LYMPHOCYTIC LEUKAEMIA
     Dosage: TABS
     Dates: start: 201107

REACTIONS (4)
  - Malignant neoplasm progression [Unknown]
  - Rectal fissure [Recovering/Resolving]
  - Subcutaneous abscess [Recovering/Resolving]
  - Constipation [Recovering/Resolving]
